FAERS Safety Report 10527047 (Version 2)
Quarter: 2014Q4

REPORT INFORMATION
  Report Type: Spontaneous
  Country: DK (occurrence: DK)
  Receive Date: 20141020
  Receipt Date: 20141020
  Transmission Date: 20150528
  Serious: Yes (Other)
  Sender: FDA-Public Use
  Company Number: DK-ROCHE-1476334

PATIENT
  Age: 37 Year
  Sex: Male
  Weight: 78 kg

DRUGS (2)
  1. XOLAIR [Suspect]
     Active Substance: OMALIZUMAB
     Indication: ASTHMA
     Route: 058
     Dates: start: 2006
  2. XOLAIR [Suspect]
     Active Substance: OMALIZUMAB
     Indication: RUBBER SENSITIVITY
     Route: 058
     Dates: start: 2006

REACTIONS (6)
  - Hypersensitivity [Not Recovered/Not Resolved]
  - Wrong technique in drug usage process [Unknown]
  - Rubber sensitivity [Not Recovered/Not Resolved]
  - Injection site pain [Recovered/Resolved]
  - Daydreaming [None]
  - Blood pressure increased [None]

NARRATIVE: CASE EVENT DATE: 20111221
